FAERS Safety Report 19357917 (Version 1)
Quarter: 2021Q2

REPORT INFORMATION
  Report Type: Spontaneous
  Country: US (occurrence: US)
  Receive Date: 20210601
  Receipt Date: 20210601
  Transmission Date: 20210717
  Serious: No
  Sender: FDA-Public Use
  Company Number: US-EMD SERONO-9239218

PATIENT
  Age: 59 Year
  Sex: Male
  Weight: 69 kg

DRUGS (1)
  1. SEROSTIM [Suspect]
     Active Substance: SOMATROPIN
     Indication: SENILE OSTEOPOROSIS
     Route: 058
     Dates: start: 202103, end: 202104

REACTIONS (2)
  - Disease complication [Unknown]
  - Off label use [Unknown]

NARRATIVE: CASE EVENT DATE: 2021
